FAERS Safety Report 14773303 (Version 2)
Quarter: 2018Q2

REPORT INFORMATION
  Report Type: Report from Study
  Country: None (occurrence: US)
  Receive Date: 20180418
  Receipt Date: 20180430
  Transmission Date: 20180711
  Serious: Yes (Hospitalization, Other)
  Sender: FDA-Public Use
  Company Number: US-ABBVIE-18K-163-2278903-00

PATIENT
  Sex: Female

DRUGS (1)
  1. HUMIRA [Suspect]
     Active Substance: ADALIMUMAB
     Indication: PSORIASIS
     Route: 058

REACTIONS (7)
  - Hypotension [Unknown]
  - Walking aid user [Unknown]
  - Musculoskeletal discomfort [Unknown]
  - Chronic kidney disease [Recovering/Resolving]
  - Osteoarthritis [Unknown]
  - Dehydration [Unknown]
  - Kidney infection [Recovering/Resolving]
